FAERS Safety Report 20094855 (Version 2)
Quarter: 2021Q4

REPORT INFORMATION
  Report Type: Spontaneous
  Country: US (occurrence: US)
  Receive Date: 20211122
  Receipt Date: 20211209
  Transmission Date: 20220303
  Serious: No
  Sender: FDA-Public Use
  Company Number: US-APOTEX-2021AP045144

PATIENT
  Sex: Male

DRUGS (3)
  1. RUGBY NICOTINE [Suspect]
     Active Substance: NICOTINE
     Indication: Smoking cessation therapy
     Dosage: 1 PATCH, QD
     Route: 062
     Dates: start: 20210927, end: 20211018
  2. DICLOFENAC SODIUM [Concomitant]
     Active Substance: DICLOFENAC SODIUM
     Indication: Blood pressure abnormal
     Dosage: 1 TABLET, QD
     Route: 065
  3. NARCO [Concomitant]
     Indication: Pain
     Dosage: 1 TABLET, QD
     Route: 065

REACTIONS (8)
  - Flushing [Unknown]
  - Urticaria chronic [Unknown]
  - Rash macular [Not Recovered/Not Resolved]
  - Pruritus [Unknown]
  - Urticaria [Recovered/Resolved]
  - Erythema [Unknown]
  - Product adhesion issue [Unknown]
  - Product quality issue [Unknown]

NARRATIVE: CASE EVENT DATE: 20210101
